FAERS Safety Report 24061764 (Version 1)
Quarter: 2024Q3

REPORT INFORMATION
  Report Type: Spontaneous
  Country: US (occurrence: None)
  Receive Date: 20240706
  Receipt Date: 20240706
  Transmission Date: 20241017
  Serious: Yes (Death)
  Sender: Public
  Company Number: None

PATIENT
  Age: 76 Year
  Sex: Female
  Weight: 85 kg

DRUGS (4)
  1. NOLVADEX [Suspect]
     Active Substance: TAMOXIFEN CITRATE
  2. LAMICTAL [Concomitant]
     Active Substance: LAMOTRIGINE
  3. IITHIUM CARBONATE [Concomitant]
  4. TRAZODONE [Concomitant]
     Active Substance: TRAZODONE HYDROCHLORIDE

REACTIONS (5)
  - Cytopenia [None]
  - Erythropenia [None]
  - Leukopenia [None]
  - Thrombocytopenia [None]
  - Blast cell count increased [None]

NARRATIVE: CASE EVENT DATE: 20200320
